FAERS Safety Report 4262254-4 (Version None)
Quarter: 2004Q1

REPORT INFORMATION
  Report Type: 
  Country: None (occurrence: None)
  Receive Date: 20040102
  Receipt Date: 20031222
  Transmission Date: 20041129
  Serious: Yes (Other)
  Sender: FDA-Public Use
  Company Number: PHBS2003JP14445

PATIENT
  Sex: Female

DRUGS (2)
  1. VOLTAREN [Suspect]
     Indication: ANTIPYRESIS
     Dosage: 25 MG/DAY
     Route: 054
     Dates: start: 20000928, end: 20000928
  2. PROSTAGLANDIN E2 [Suspect]
     Indication: LABOUR INDUCTION
     Dosage: 1.5 MG/DAY
     Route: 048
     Dates: start: 20000927, end: 20000927

REACTIONS (5)
  - BODY TEMPERATURE INCREASED [None]
  - CAESAREAN SECTION [None]
  - DRUG EXPOSURE DURING PREGNANCY [None]
  - FOETAL HEART RATE DECELERATION [None]
  - INTRA-UTERINE DEATH [None]
